FAERS Safety Report 12063347 (Version 2)
Quarter: 2016Q1

REPORT INFORMATION
  Report Type: Report from Study
  Country: CA (occurrence: CA)
  Receive Date: 20160210
  Receipt Date: 20160219
  Transmission Date: 20160526
  Serious: Yes (Hospitalization)
  Sender: FDA-Public Use
  Company Number: CA-BIOGEN-2016BI00176620

PATIENT
  Age: 39 Year
  Sex: Female

DRUGS (1)
  1. TECFIDERA [Suspect]
     Active Substance: DIMETHYL FUMARATE
     Indication: MULTIPLE SCLEROSIS
     Route: 048
     Dates: start: 20151228, end: 20160124

REACTIONS (16)
  - Diarrhoea [Recovered/Resolved]
  - Vomiting [Recovered/Resolved]
  - Dehydration [Recovered/Resolved]
  - Asthenia [Not Recovered/Not Resolved]
  - Abdominal pain [Not Recovered/Not Resolved]
  - Dry mouth [Recovered/Resolved]
  - Drug-induced liver injury [Unknown]
  - Pain in extremity [Recovered/Resolved]
  - Cough [Not Recovered/Not Resolved]
  - Erythema [Unknown]
  - Feeding disorder [Unknown]
  - Swelling [Unknown]
  - Decreased appetite [Not Recovered/Not Resolved]
  - Paraesthesia [Recovered/Resolved]
  - Feeling hot [Unknown]
  - Fatigue [Not Recovered/Not Resolved]

NARRATIVE: CASE EVENT DATE: 20151228
